FAERS Safety Report 19442209 (Version 1)
Quarter: 2021Q2

REPORT INFORMATION
  Report Type: Spontaneous
  Country: DE (occurrence: DE)
  Receive Date: 20210621
  Receipt Date: 20210621
  Transmission Date: 20210717
  Serious: Yes (Congenital Anomaly, Other)
  Sender: FDA-Public Use
  Company Number: DE-PERRIGO-21DE007835

PATIENT
  Sex: Female

DRUGS (4)
  1. MELATONIN [Suspect]
     Active Substance: MELATONIN
     Indication: FOETAL EXPOSURE DURING PREGNANCY
     Dosage: UNK
     Route: 064
  2. AMITRIPTYLINE [Suspect]
     Active Substance: AMITRIPTYLINE
     Indication: FOETAL EXPOSURE DURING PREGNANCY
     Dosage: UNK
     Route: 064
  3. VITAMIN A                          /00056001/ [Suspect]
     Active Substance: RETINOL
     Indication: FOETAL EXPOSURE DURING PREGNANCY
     Dosage: UNK
     Route: 064
  4. NAPROXEN SODIUM. [Suspect]
     Active Substance: NAPROXEN SODIUM
     Indication: FOETAL EXPOSURE DURING PREGNANCY
     Dosage: 500 MG, PRN
     Route: 064

REACTIONS (8)
  - Aorta hypoplasia [Unknown]
  - Ventricular septal defect [Unknown]
  - Tracheo-oesophageal fistula [Unknown]
  - Choanal stenosis [Unknown]
  - Foetal exposure during pregnancy [Recovered/Resolved]
  - Premature baby [Unknown]
  - Atrial septal defect [Unknown]
  - Oesophageal atresia [Unknown]
